FAERS Safety Report 5049713-1 (Version None)
Quarter: 2006Q3

REPORT INFORMATION
  Report Type: 
  Country: None (occurrence: None)
  Receive Date: 20060707
  Receipt Date: 20060622
  Transmission Date: 20061208
  Serious: Yes (Hospitalization)
  Sender: FDA-Public Use
  Company Number: 2006BI008989

PATIENT
  Age: 61 Year
  Sex: Female
  Weight: 61.6892 kg

DRUGS (4)
  1. AVONEX [Suspect]
     Indication: MULTIPLE SCLEROSIS
     Dosage: 30 UG;QW;IM
     Route: 030
     Dates: start: 20000101, end: 20040101
  2. FLUTICASONE PROPIONATE [Concomitant]
  3. ADVAIR DISKUS 100/50 [Concomitant]
  4. SPIRIVA [Concomitant]

REACTIONS (9)
  - DEPRESSION [None]
  - DYSPHAGIA [None]
  - FIBROMYALGIA [None]
  - HEART RATE IRREGULAR [None]
  - INSOMNIA [None]
  - NEURALGIA [None]
  - PNEUMONIA ASPIRATION [None]
  - RESTLESS LEGS SYNDROME [None]
  - THYROID DISORDER [None]
